FAERS Safety Report 24221322 (Version 2)
Quarter: 2025Q1

REPORT INFORMATION
  Report Type: Spontaneous
  Country: US (occurrence: US)
  Receive Date: 20240819
  Receipt Date: 20250128
  Transmission Date: 20250408
  Serious: Yes (Hospitalization, Other)
  Sender: NOVO NORDISK
  Company Number: US-NOVOPROD-1268412

PATIENT
  Age: 42 Year
  Sex: Male
  Weight: 92.517 kg

DRUGS (19)
  1. OZEMPIC [Suspect]
     Active Substance: SEMAGLUTIDE
     Indication: Type 2 diabetes mellitus
     Route: 058
     Dates: start: 20181127, end: 20190312
  2. OZEMPIC [Suspect]
     Active Substance: SEMAGLUTIDE
     Route: 058
     Dates: start: 20190606, end: 20190918
  3. OZEMPIC [Suspect]
     Active Substance: SEMAGLUTIDE
     Indication: Type 2 diabetes mellitus
     Dosage: 2 MG, QW
     Route: 058
     Dates: start: 20211115, end: 20211212
  4. OZEMPIC [Suspect]
     Active Substance: SEMAGLUTIDE
     Indication: Type 2 diabetes mellitus
     Dosage: 4 MG, QW
     Route: 058
     Dates: start: 20211213, end: 20230115
  5. OZEMPIC [Suspect]
     Active Substance: SEMAGLUTIDE
     Dosage: 4 MG, QW
     Route: 058
     Dates: start: 20230318, end: 20230615
  6. OZEMPIC [Suspect]
     Active Substance: SEMAGLUTIDE
     Dosage: 8 MG, QW
     Route: 058
     Dates: start: 20230616, end: 20230820
  7. XIGDUO XR [Concomitant]
     Active Substance: DAPAGLIFLOZIN PROPANEDIOL\METFORMIN HYDROCHLORIDE
     Indication: Type 2 diabetes mellitus
     Dates: start: 201701, end: 202307
  8. VYVANSE [Concomitant]
     Active Substance: LISDEXAMFETAMINE DIMESYLATE
     Indication: Attention deficit hyperactivity disorder
     Dates: start: 20161230, end: 20230317
  9. LISINOPRIL [Concomitant]
     Active Substance: LISINOPRIL
     Indication: Hypertension
     Dates: start: 20160803, end: 20231107
  10. ROSUVASTATIN [Concomitant]
     Active Substance: ROSUVASTATIN
     Indication: Blood cholesterol increased
     Dates: start: 20161107, end: 20231107
  11. BYSTOLIC [Concomitant]
     Active Substance: NEBIVOLOL HYDROCHLORIDE
     Indication: Hypertension
     Dates: start: 20170104, end: 20231107
  12. METFORMIN [Concomitant]
     Active Substance: METFORMIN HYDROCHLORIDE
     Indication: Type 2 diabetes mellitus
     Dates: start: 201611, end: 201701
  13. METFORMIN [Concomitant]
     Active Substance: METFORMIN HYDROCHLORIDE
     Dates: start: 20170104, end: 20221114
  14. DIAZEPAM [Concomitant]
     Active Substance: DIAZEPAM
     Indication: Anxiety
     Dates: start: 20230815
  15. PROCHLORPERAZINE [Concomitant]
     Active Substance: PROCHLORPERAZINE
     Indication: Anxiety
     Dates: start: 20230725
  16. DULOXETINE [Concomitant]
     Active Substance: DULOXETINE
     Indication: Mental disorder
     Dates: start: 20230818, end: 20231107
  17. PRAVASTATIN [Concomitant]
     Active Substance: PRAVASTATIN
     Indication: Blood cholesterol increased
     Dates: start: 20180110, end: 20190125
  18. MAGNESIUM [Concomitant]
     Active Substance: MAGNESIUM
     Indication: Product used for unknown indication
  19. VITAMINS [Concomitant]
     Active Substance: VITAMINS
     Indication: Product used for unknown indication

REACTIONS (4)
  - Impaired gastric emptying [Not Recovered/Not Resolved]
  - Constipation [Not Recovered/Not Resolved]
  - Diarrhoea [Not Recovered/Not Resolved]
  - Product use issue [Unknown]

NARRATIVE: CASE EVENT DATE: 20190201
